FAERS Safety Report 7107741-6 (Version None)
Quarter: 2010Q4

REPORT INFORMATION
  Report Type: 
  Country: None (occurrence: None)
  Receive Date: 20101117
  Receipt Date: 20101108
  Transmission Date: 20110411
  Serious: Yes (Hospitalization)
  Sender: FDA-Public Use
  Company Number: CH-ASTRAZENECA-2010SE51165

PATIENT
  Age: 28 Year
  Sex: Male

DRUGS (4)
  1. SEROQUEL [Suspect]
     Indication: SCHIZOPHRENIA
     Route: 048
  2. SEROQUEL [Suspect]
     Route: 048
     Dates: start: 20101001
  3. SEROQUEL [Suspect]
     Route: 048
     Dates: end: 20101027
  4. CYMBALTA [Concomitant]
     Dates: end: 20101027

REACTIONS (1)
  - SEROTONIN SYNDROME [None]
